FAERS Safety Report 9513008 (Version 1)
Quarter: 2013Q3

REPORT INFORMATION
  Report Type: Spontaneous
  Country: US (occurrence: US)
  Receive Date: 20130910
  Receipt Date: 20130910
  Transmission Date: 20140515
  Serious: Yes (Other)
  Sender: FDA-Public Use
  Company Number: US-PFIZER INC-2013256245

PATIENT
  Age: 55 Year
  Sex: Female
  Weight: 58.05 kg

DRUGS (2)
  1. ESTRING [Suspect]
     Indication: VULVOVAGINAL DRYNESS
     Dosage: 2 MG, EVERY 3 MONTHS
     Route: 067
     Dates: start: 201308
  2. ESTRING [Suspect]
     Indication: ATROPHIC VULVOVAGINITIS

REACTIONS (1)
  - Cystitis [Recovered/Resolved]
